FAERS Safety Report 6739254-5 (Version None)
Quarter: 2010Q2

REPORT INFORMATION
  Report Type: 
  Country: None (occurrence: None)
  Receive Date: 20100525
  Receipt Date: 20100518
  Transmission Date: 20101027
  Serious: Yes (Death)
  Sender: FDA-Public Use
  Company Number: US-SHIRE-SPV1-2010-00006

PATIENT

DRUGS (4)
  1. INTUNIV [Suspect]
     Indication: DRUG USE FOR UNKNOWN INDICATION
     Dosage: 1 MG, 1X/DAY:QD
     Route: 048
     Dates: start: 20091229, end: 20091231
  2. LAMICTAL [Concomitant]
     Indication: CONVULSION
     Dosage: 100 MG, 2X/DAY:BID
     Route: 048
     Dates: end: 20091231
  3. MELATONIN [Concomitant]
     Indication: INSOMNIA
     Dosage: UNK, 1X/DAY:QD (AT NIGHT FOR INSOMNIA)
  4. TOPAMAX [Concomitant]
     Indication: EPILEPSY
     Dosage: 25 MG, 2X/DAY:BID
     Route: 048
     Dates: start: 20091130

REACTIONS (3)
  - FEELING COLD [None]
  - MALAISE [None]
  - SUDDEN UNEXPLAINED DEATH IN EPILEPSY [None]
